FAERS Safety Report 7166433-8 (Version None)
Quarter: 2010Q4

REPORT INFORMATION
  Report Type: 
  Country: None (occurrence: None)
  Receive Date: 20101216
  Receipt Date: 20101203
  Transmission Date: 20110411
  Serious: Yes (Other)
  Sender: FDA-Public Use
  Company Number: PHHY2010US81241

PATIENT
  Sex: Female

DRUGS (7)
  1. RECLAST [Suspect]
     Dosage: UNK
     Route: 042
     Dates: start: 20101117
  2. BENADRYL [Suspect]
  3. SINGULAIR [Concomitant]
  4. ADVAIR [Concomitant]
  5. ALBUTEROL [Concomitant]
  6. ALLEGRA [Concomitant]
  7. PRILOSEC [Concomitant]

REACTIONS (10)
  - ABDOMINAL DISCOMFORT [None]
  - ASTHMA [None]
  - DYSPNOEA [None]
  - ERYTHEMA [None]
  - FATIGUE [None]
  - FEELING HOT [None]
  - RASH GENERALISED [None]
  - SCAR [None]
  - SPEECH DISORDER [None]
  - SWELLING [None]
